FAERS Safety Report 5190352-X (Version None)
Quarter: 2006Q4

REPORT INFORMATION
  Report Type: 
  Country: None (occurrence: None)
  Receive Date: 20061222
  Receipt Date: 20060620
  Transmission Date: 20070319
  Serious: No
  Sender: FDA-Public Use
  Company Number: US-AMGEN-US183563

PATIENT
  Sex: Female
  Weight: 58.5 kg

DRUGS (9)
  1. ARANESP [Suspect]
     Indication: DIALYSIS
     Route: 058
     Dates: start: 20050901, end: 20060523
  2. CEPHALOSPORIN [Concomitant]
     Route: 065
  3. NEPHROCAPS [Concomitant]
     Route: 065
     Dates: start: 20050901
  4. NIFEREX [Concomitant]
     Route: 065
     Dates: start: 20050901
  5. ROCALTROL [Concomitant]
     Route: 065
     Dates: start: 20050901
  6. RENAGEL [Concomitant]
     Route: 065
     Dates: start: 20050901
  7. MIRALAX [Concomitant]
     Route: 065
  8. PREVACID [Concomitant]
     Route: 065
     Dates: start: 20050901
  9. ERGOCALCIFEROL [Concomitant]
     Route: 065
     Dates: start: 20050901

REACTIONS (3)
  - PERITONITIS [None]
  - PRURITUS GENERALISED [None]
  - URTICARIA GENERALISED [None]
